FAERS Safety Report 9326490 (Version 1)
Quarter: 2013Q2

REPORT INFORMATION
  Report Type: Report from Study
  Country: CA (occurrence: CA)
  Receive Date: 20130604
  Receipt Date: 20130604
  Transmission Date: 20140414
  Serious: Yes (Other)
  Sender: FDA-Public Use
  Company Number: CA-JNJFOC-20130522950

PATIENT
  Age: 44 Year
  Sex: Female
  Weight: 88 kg

DRUGS (2)
  1. REMICADE [Suspect]
     Indication: PSORIASIS
     Dosage: APPROXIMATELY 440 MG (PLUS OR MINUS)
     Route: 042
     Dates: start: 200902
  2. METHOTREXATE [Concomitant]
     Route: 065

REACTIONS (1)
  - Bladder operation [Unknown]
